FAERS Safety Report 4360371-1 (Version None)
Quarter: 2004Q2

REPORT INFORMATION
  Report Type: 
  Country: None (occurrence: None)
  Receive Date: 20040517
  Receipt Date: 20020624
  Transmission Date: 20050107
  Serious: Yes (Other)
  Sender: FDA-Public Use
  Company Number: C02-T-030

PATIENT
  Age: 50 Year
  Sex: Female

DRUGS (1)
  1. CARISOPRODOL [Suspect]
     Indication: MUSCULOSKELETAL DISORDER
     Dates: start: 20020525, end: 20020618

REACTIONS (1)
  - DRUG INEFFECTIVE [None]
